FAERS Safety Report 8212995-9 (Version None)
Quarter: 2012Q1

REPORT INFORMATION
  Report Type: 
  Country: None (occurrence: None)
  Receive Date: 20120315
  Receipt Date: 20120305
  Transmission Date: 20120608
  Serious: No
  Sender: FDA-Public Use
  Company Number: US-B.I. PHARMACEUTICALS,INC./RIDGEFIELD-2012-BP-04159BP

PATIENT
  Age: 91 Year
  Sex: Female

DRUGS (3)
  1. DIGOXIN [Concomitant]
  2. NIASPAN [Concomitant]
     Indication: BLOOD CHOLESTEROL ABNORMAL
  3. PRADAXA [Suspect]
     Dosage: 300 MG
     Route: 048
     Dates: start: 20120222, end: 20120225

REACTIONS (5)
  - VOMITING [None]
  - ASTHENIA [None]
  - HEADACHE [None]
  - HALLUCINATION [None]
  - HAEMATOCHEZIA [None]
